FAERS Safety Report 6097219-3 (Version None)
Quarter: 2009Q1

REPORT INFORMATION
  Report Type: 
  Country: None (occurrence: None)
  Receive Date: 20090227
  Receipt Date: 20090223
  Transmission Date: 20090719
  Serious: Yes (Other)
  Sender: FDA-Public Use
  Company Number: B0557948A

PATIENT
  Age: 10 Year
  Sex: Female
  Weight: 37 kg

DRUGS (6)
  1. RELENZA [Suspect]
     Indication: INFLUENZA
     Dosage: 10MG TWICE PER DAY
     Route: 055
     Dates: start: 20090127, end: 20090131
  2. MUCODYNE [Concomitant]
     Route: 048
     Dates: start: 20090127, end: 20090131
  3. UNKNOWN MEDICATION [Concomitant]
     Dates: start: 20090127, end: 20090131
  4. UNKNOWN MEDICATION [Concomitant]
     Dates: start: 20090127, end: 20090131
  5. HOKUNALIN [Concomitant]
     Route: 062
     Dates: start: 20090127, end: 20090131
  6. CALONAL [Concomitant]
     Route: 048
     Dates: start: 20090127

REACTIONS (4)
  - ABNORMAL BEHAVIOUR [None]
  - APHASIA [None]
  - BODY TEMPERATURE DECREASED [None]
  - EYE MOVEMENT DISORDER [None]
